FAERS Safety Report 7404405-6 (Version None)
Quarter: 2011Q2

REPORT INFORMATION
  Report Type: 
  Country: None (occurrence: None)
  Receive Date: 20110408
  Receipt Date: 20110331
  Transmission Date: 20111010
  Serious: Yes (Hospitalization)
  Sender: FDA-Public Use
  Company Number: GXBR2011US01288

PATIENT
  Sex: Male

DRUGS (8)
  1. ENOXAPARIN SODIUM [Suspect]
     Indication: THROMBOSIS
     Dosage: 90 MG, BID
     Route: 058
     Dates: start: 20110311
  2. VITAMIN B6 [Concomitant]
     Indication: SUPPLEMENTATION THERAPY
     Dosage: 50 MG, UNK
  3. FLOMAX [Concomitant]
     Dosage: 0.4 MG, QD
     Dates: start: 20110301
  4. LOPRESSOR [Concomitant]
     Indication: HYPERTENSION
     Dosage: 75 MG, QD
  5. SYNTHROID [Concomitant]
     Indication: HYPOTHYROIDISM
     Dosage: 0.25 MG, QD
  6. FOLIC ACID [Concomitant]
     Indication: SUPPLEMENTATION THERAPY
     Dosage: 400 MG, UNK
  7. ZOCOR [Concomitant]
     Indication: BLOOD CHOLESTEROL INCREASED
     Dosage: 20 MG, QD
  8. VITAMIN B-12 [Concomitant]
     Indication: SUPPLEMENTATION THERAPY
     Dosage: 1000 MG, UNK

REACTIONS (4)
  - DYSPNOEA [None]
  - PERICARDIAL EFFUSION [None]
  - CHEST DISCOMFORT [None]
  - PLEURAL EFFUSION [None]
